FAERS Safety Report 9805850 (Version 2)
Quarter: 2014Q1

REPORT INFORMATION
  Report Type: Report from Study
  Country: US (occurrence: US)
  Receive Date: 20131230
  Receipt Date: 20140110
  Transmission Date: 20141002
  Serious: Yes (Hospitalization, Other)
  Sender: FDA-Public Use
  Company Number: US-ACTELION-A-NJ2013-92712

PATIENT
  Age: 43 Year
  Sex: Female

DRUGS (2)
  1. TRACLEER [Suspect]
     Indication: PULMONARY ARTERIAL HYPERTENSION
     Dosage: UNK
     Route: 048
     Dates: start: 2006
  2. ADCIRCA [Concomitant]

REACTIONS (3)
  - Atrial fibrillation [Recovering/Resolving]
  - Cardioversion [Recovering/Resolving]
  - Cardiac ablation [Recovering/Resolving]
